FAERS Safety Report 5985013-0 (Version None)
Quarter: 2008Q4

REPORT INFORMATION
  Report Type: 
  Country: None (occurrence: None)
  Receive Date: 20081201
  Receipt Date: 20081118
  Transmission Date: 20090506
  Serious: Yes (Hospitalization, Disabling)
  Sender: FDA-Public Use
  Company Number: WSDF_00213

PATIENT
  Age: 62 Year
  Sex: Male
  Weight: 99 kg

DRUGS (5)
  1. WINRHO [Suspect]
     Indication: IDIOPATHIC THROMBOCYTOPENIC PURPURA
     Dosage: 50 UG/KG IV
     Route: 042
     Dates: start: 20010405, end: 20010405
  2. LIPITOR [Concomitant]
  3. ASPIRIN [Concomitant]
  4. PREDNISONE TAB [Concomitant]
  5. DANAZOL [Concomitant]

REACTIONS (14)
  - ACUTE RESPIRATORY DISTRESS SYNDROME [None]
  - BLOOD CREATININE INCREASED [None]
  - CEREBRAL ARTERY OCCLUSION [None]
  - CEREBRAL HAEMORRHAGE [None]
  - COMA [None]
  - CORTICAL LAMINAR NECROSIS [None]
  - DECEREBRATION [None]
  - DEMYELINATION [None]
  - ENCEPHALITIS [None]
  - EXTRAVASCULAR HAEMOLYSIS [None]
  - HYPOTHYROIDISM [None]
  - INTRACRANIAL ANEURYSM [None]
  - POSTURING [None]
  - VASCULITIS CEREBRAL [None]
